FAERS Safety Report 18267663 (Version 2)
Quarter: 2020Q4

REPORT INFORMATION
  Report Type: Report from Study
  Country: US (occurrence: US)
  Receive Date: 20200915
  Receipt Date: 20201014
  Transmission Date: 20210113
  Serious: No
  Sender: FDA-Public Use
  Company Number: US-ELI_LILLY_AND_COMPANY-US202009006360

PATIENT
  Age: 53 Year
  Sex: Male

DRUGS (1)
  1. TALTZ [Suspect]
     Active Substance: IXEKIZUMAB
     Indication: PRODUCT USED FOR UNKNOWN INDICATION
     Dosage: 80 MG, UNKNOWN
     Route: 065
     Dates: start: 202002

REACTIONS (9)
  - Chills [Unknown]
  - Hypersensitivity [Unknown]
  - Respiratory disorder [Unknown]
  - Fungal skin infection [Unknown]
  - Back disorder [Unknown]
  - Oropharyngeal pain [Unknown]
  - Ear infection [Unknown]
  - Injection site rash [Unknown]
  - Hyperhidrosis [Unknown]

NARRATIVE: CASE EVENT DATE: 202003
